FAERS Safety Report 23625458 (Version 1)
Quarter: 2024Q1

REPORT INFORMATION
  Report Type: Spontaneous
  Country: BR (occurrence: BR)
  Receive Date: 20240313
  Receipt Date: 20240313
  Transmission Date: 20240409
  Serious: Yes (Other)
  Sender: FDA-Public Use
  Company Number: BR-BAXTER-2024BAX013924

PATIENT
  Age: 26 Year
  Sex: Female

DRUGS (6)
  1. IRON [Suspect]
     Active Substance: IRON
     Indication: Mineral supplementation
     Dosage: 2 AMPOULES DILUTED IN 250 ML OF SALINE ONCE A WEEK FOR 3 WEEKS, TOTALING 6 AMPOULES
     Route: 042
     Dates: start: 20240125, end: 20240125
  2. IRON [Suspect]
     Active Substance: IRON
     Dosage: 2 AMPOULES DILUTED IN 250 ML OF SALINE ONCE A WEEK FOR 3 WEEKS, TOTALING 6 AMPOULES
     Route: 042
     Dates: start: 20240131, end: 20240131
  3. SODIUM CHLORIDE [Suspect]
     Active Substance: SODIUM CHLORIDE
     Indication: Medication dilution
     Dosage: 250 ML OF SALINE ONCE A WEEK FOR 3 WEEKS, TOTALING 6 AMPOULES
     Route: 042
     Dates: start: 20240125, end: 20240125
  4. SODIUM CHLORIDE [Suspect]
     Active Substance: SODIUM CHLORIDE
     Dosage: 250 ML OF SALINE ONCE A WEEK FOR 3 WEEKS, TOTALING 6 AMPOULES
     Route: 042
     Dates: start: 20240131, end: 20240131
  5. LORATADINE [Suspect]
     Active Substance: LORATADINE
     Indication: Drug therapy
     Dosage: 10 MILLIGRAM (MG), UNSPECIFIED FREQUENCY
     Route: 048
     Dates: start: 20240125, end: 20240125
  6. PREDNISOLONE [Suspect]
     Active Substance: PREDNISOLONE
     Indication: Drug therapy
     Dosage: 10 MILLILITER (ML), UNSPECIFIED FREQUENCY
     Route: 048
     Dates: start: 20240125, end: 20240125

REACTIONS (5)
  - Generalised oedema [Recovered/Resolved]
  - Generalised oedema [Recovered/Resolved]
  - Oedema peripheral [Recovered/Resolved]
  - Oedema peripheral [Recovered/Resolved]
  - Product administration error [Unknown]

NARRATIVE: CASE EVENT DATE: 20240125
